FAERS Safety Report 8883156 (Version 2)
Quarter: 2012Q4

REPORT INFORMATION
  Report Type: 
  Country: CR (occurrence: CR)
  Receive Date: 20121102
  Receipt Date: 20121109
  Transmission Date: 20130627
  Serious: Yes (Other)
  Sender: FDA-Public Use
  Company Number: PHHY2012CR098225

PATIENT
  Age: 1 Year
  Sex: Female
  Weight: 8 kg

DRUGS (6)
  1. CATAFLAM [Suspect]
     Indication: PYREXIA
     Dosage: 2 DF, one every 12 hours
     Dates: start: 20121024
  2. INTRAFER [Concomitant]
  3. SERTAL [Concomitant]
  4. PERENTEROL [Concomitant]
  5. DICLOFENAC [Concomitant]
     Route: 048
  6. REHYDRATION THERAPY [Concomitant]

REACTIONS (1)
  - Haemorrhage [Recovered/Resolved]
